FAERS Safety Report 21795251 (Version 1)
Quarter: 2022Q4

REPORT INFORMATION
  Report Type: Spontaneous
  Country: US (occurrence: None)
  Receive Date: 20221228
  Receipt Date: 20221228
  Transmission Date: 20230113
  Serious: No
  Sender: FDA-Public Use
  Company Number: None

PATIENT
  Sex: Female

DRUGS (1)
  1. COSENTYX [Suspect]
     Active Substance: SECUKINUMAB
     Indication: Psoriasis
     Dosage: 300MG EVERY 4 WEEKS SUBCUTANEOUS
     Route: 058
     Dates: start: 20210708

REACTIONS (4)
  - Therapeutic product effect decreased [None]
  - Erythema [None]
  - Pruritus [None]
  - Skin burning sensation [None]
